FAERS Safety Report 15427915 (Version 6)
Quarter: 2019Q3

REPORT INFORMATION
  Report Type: Report from Study
  Country: IL (occurrence: IL)
  Receive Date: 20180926
  Receipt Date: 20190928
  Transmission Date: 20191004
  Serious: Yes (Hospitalization)
  Sender: FDA-Public Use
  Company Number: IL-IPSEN BIOPHARMACEUTICALS, INC.-2018-14693

PATIENT
  Age: 69 Year
  Sex: Female
  Weight: 85 kg

DRUGS (11)
  1. CF [Concomitant]
     Route: 048
  2. AVAMYS [Concomitant]
     Active Substance: FLUTICASONE FUROATE
     Dosage: 2 SPR
     Route: 045
  3. OMEPRADEX [Concomitant]
     Active Substance: OMEPRAZOLE
     Route: 048
  4. RELVAR ELLIPTA [Concomitant]
     Active Substance: FLUTICASONE FUROATE\VILANTEROL TRIFENATATE
     Dosage: 92/22 MICROGRAM INHALER
  5. CIPRALEX [Concomitant]
     Active Substance: ESCITALOPRAM OXALATE
     Route: 048
  6. DALIRESP [Concomitant]
     Active Substance: ROFLUMILAST
     Route: 048
  7. SOMATULINE AUTOGEL 120MG [Suspect]
     Active Substance: LANREOTIDE ACETATE
     Indication: NEUROENDOCRINE TUMOUR
     Route: 058
     Dates: start: 20180821
  8. DISOTHIAZIDE [Concomitant]
     Active Substance: HYDROCHLOROTHIAZIDE
     Route: 048
  9. QVAR [Concomitant]
     Active Substance: BECLOMETHASONE DIPROPIONATE
  10. INCRUSE ELLIPTA [Concomitant]
     Active Substance: UMECLIDINIUM BROMIDE
     Dosage: 1 PUFF
  11. LIPITOR [Concomitant]
     Active Substance: ATORVASTATIN CALCIUM
     Route: 048

REACTIONS (11)
  - Respiratory disorder [Not Recovered/Not Resolved]
  - Pain [Unknown]
  - Condition aggravated [Not Recovered/Not Resolved]
  - Abdominal hernia [Unknown]
  - Vertigo [Recovering/Resolving]
  - Influenza [Unknown]
  - Respiration abnormal [Unknown]
  - Intestinal obstruction [Recovered/Resolved]
  - Dyspnoea [Recovering/Resolving]
  - Cough [Recovering/Resolving]
  - Rhinorrhoea [Unknown]

NARRATIVE: CASE EVENT DATE: 20190407
